FAERS Safety Report 26121687 (Version 1)
Quarter: 2025Q4

REPORT INFORMATION
  Report Type: Spontaneous
  Country: EU (occurrence: EU)
  Receive Date: 20251204
  Receipt Date: 20251204
  Transmission Date: 20260119
  Serious: Yes (Life-Threatening, Congenital Anomaly)
  Sender: PFIZER
  Company Number: EU-EMB-M202407323-1

PATIENT

DRUGS (3)
  1. AZITHROMYCIN [Suspect]
     Active Substance: AZITHROMYCIN
     Indication: Bacterial vulvovaginitis
     Dosage: 1500 MG, 1X/DAY
     Route: 064
     Dates: start: 202406, end: 202406
  2. CLINDAMYCIN HYDROCHLORIDE [Suspect]
     Active Substance: CLINDAMYCIN HYDROCHLORIDE
     Indication: Chlamydial infection
     Dosage: 100 MG, 1X/DAY
     Route: 064
     Dates: start: 202406, end: 202406
  3. DOXYLAMINE SUCCINATE\PYRIDOXINE HYDROCHLORIDE [Suspect]
     Active Substance: DOXYLAMINE SUCCINATE\PYRIDOXINE HYDROCHLORIDE
     Indication: Morning sickness
     Dosage: 10 MG, FREQ: 0.5/DAY
     Route: 064
     Dates: start: 202406, end: 202408

REACTIONS (4)
  - Maternal exposure during pregnancy [Unknown]
  - Hypoplastic right heart syndrome [Not Recovered/Not Resolved]
  - Double outlet left ventricle [Not Recovered/Not Resolved]
  - Ventricular septal defect [Not Recovered/Not Resolved]
